FAERS Safety Report 6496813-5 (Version None)
Quarter: 2009Q4

REPORT INFORMATION
  Report Type: 
  Country: None (occurrence: None)
  Receive Date: 20091125
  Receipt Date: 20090408
  Transmission Date: 20100525
  Serious: Yes (Other)
  Sender: FDA-Public Use
  Company Number: 2009BH005617

PATIENT
  Age: 51 Year
  Sex: Female

DRUGS (16)
  1. DIANEAL [Suspect]
     Indication: PERITONEAL DIALYSIS
     Dosage: 8.6 L; EVERY DAY; IP
     Route: 033
     Dates: start: 20050912, end: 20090318
  2. DIANEAL [Suspect]
     Indication: PERITONEAL DIALYSIS
     Dosage: IP
     Route: 033
  3. EPOGEN [Concomitant]
  4. HECTEROL [Concomitant]
  5. LOPRESSOR [Concomitant]
  6. COLACE [Concomitant]
  7. NITROGLYCERIN [Concomitant]
  8. LACTULOSE [Concomitant]
  9. NIFEREX [Concomitant]
  10. FERRLECIT [Concomitant]
  11. ZESTRIL [Concomitant]
  12. PROCARDIA [Concomitant]
  13. ZETIA [Concomitant]
  14. LOVASTATIN [Concomitant]
  15. PHOSLO [Concomitant]
  16. GENTAMICIN [Concomitant]

REACTIONS (2)
  - MICTURITION URGENCY [None]
  - PERITONITIS BACTERIAL [None]
